FAERS Safety Report 9529368 (Version 3)
Quarter: 2013Q4

REPORT INFORMATION
  Report Type: Spontaneous
  Country: FR (occurrence: FR)
  Receive Date: 20130917
  Receipt Date: 20131106
  Transmission Date: 20140711
  Serious: Yes (Life-Threatening, Hospitalization, Other)
  Sender: FDA-Public Use
  Company Number: FR-ABBVIE-11P-056-0713984-00

PATIENT
  Sex: Female
  Weight: 81 kg

DRUGS (4)
  1. HUMIRA [Suspect]
     Indication: RHEUMATOID ARTHRITIS
     Route: 058
     Dates: start: 20080211, end: 20111024
  2. METOJECT [Concomitant]
     Indication: RHEUMATOID ARTHRITIS
     Dates: start: 1992
  3. SPECIAFOLDINE [Concomitant]
     Route: 048
  4. TRAMADOL [Concomitant]
     Route: 048

REACTIONS (5)
  - Phlebitis [Recovered/Resolved with Sequelae]
  - Phlebitis [Recovering/Resolving]
  - Pulmonary embolism [Recovered/Resolved with Sequelae]
  - Pulmonary embolism [Recovering/Resolving]
  - Hepatic cyst [Unknown]
